FAERS Safety Report 10505709 (Version 1)
Quarter: 2014Q4

REPORT INFORMATION
  Report Type: Spontaneous
  Country: US (occurrence: US)
  Receive Date: 20141008
  Receipt Date: 20141008
  Transmission Date: 20150528
  Serious: No
  Sender: FDA-Public Use
  Company Number: US-PFIZER INC-2014272841

PATIENT
  Sex: Male

DRUGS (1)
  1. TESSALON [Suspect]
     Active Substance: BENZONATATE
     Dosage: TWO CAPSULES, UNK

REACTIONS (1)
  - Aphonia [Unknown]
